FAERS Safety Report 9501746 (Version 1)
Quarter: 2013Q1

REPORT INFORMATION
  Report Type: Spontaneous
  Country: US (occurrence: None)
  Receive Date: 20130107
  Receipt Date: 20130107
  Transmission Date: 20140127
  Serious: No
  Sender: FDA-Public Use
  Company Number: PHEH2012US018129

PATIENT
  Age: 33 Year
  Sex: Female
  Weight: 78 kg

DRUGS (10)
  1. GILENYA [Suspect]
     Indication: MULTIPLE SCLEROSIS
     Route: 048
  2. LUNESTA [Concomitant]
  3. ATIVAN [Concomitant]
  4. MOTRIN [Concomitant]
  5. VITAMIN D3 [Concomitant]
  6. FISH OIL [Concomitant]
  7. COPAXONE [Concomitant]
  8. CYMBALTA [Concomitant]
  9. VITAMIN B COMPLEX [Concomitant]
  10. CASTOR OIL [Concomitant]

REACTIONS (2)
  - Cognitive disorder [None]
  - Amnesia [None]
